FAERS Safety Report 4862747-2 (Version None)
Quarter: 2005Q4

REPORT INFORMATION
  Report Type: 
  Country: None (occurrence: None)
  Receive Date: 20051221
  Receipt Date: 20051209
  Transmission Date: 20060501
  Serious: Yes (Death)
  Sender: FDA-Public Use
  Company Number: AT-BRISTOL-MYERS SQUIBB COMPANY-13211511

PATIENT
  Age: 80 Year
  Sex: Male
  Weight: 95 kg

DRUGS (3)
  1. MAXIPIME [Suspect]
     Indication: ABDOMINAL INFECTION
     Dates: start: 20050919, end: 20050929
  2. METRONIDAZOLE [Suspect]
     Indication: ABDOMINAL INFECTION
     Dates: start: 20050914, end: 20050929
  3. CEFAZOLIN SODIUM [Concomitant]
     Dates: start: 20050914, end: 20050919

REACTIONS (1)
  - ANASTOMOTIC COMPLICATION [None]
